FAERS Safety Report 8516023-7 (Version None)
Quarter: 2012Q3

REPORT INFORMATION
  Report Type: 
  Country: None (occurrence: None)
  Receive Date: 20120717
  Receipt Date: 20120409
  Transmission Date: 20120928
  Serious: No
  Sender: FDA-Public Use
  Company Number: US-NOVEN-12US004436

PATIENT
  Sex: Female

DRUGS (2)
  1. FENTANYL [Suspect]
     Indication: FIBROMYALGIA
     Dosage: 75 UG/HR EVERY 48 HRS
     Route: 062
     Dates: start: 20040101
  2. FENTANYL [Suspect]
     Dosage: 100 UG/HR

REACTIONS (2)
  - HYPERHIDROSIS [None]
  - INADEQUATE ANALGESIA [None]
